FAERS Safety Report 7064708-4 (Version None)
Quarter: 2010Q4

REPORT INFORMATION
  Report Type: 
  Country: None (occurrence: None)
  Receive Date: 20101019
  Receipt Date: 20101006
  Transmission Date: 20110411
  Serious: Yes (Death, Hospitalization)
  Sender: FDA-Public Use
  Company Number: DSU-2010-05404

PATIENT
  Age: 77 Year
  Sex: Female

DRUGS (4)
  1. OLMETEC HCT (HYDROCHLOROTHIAZIDE, OLMESARTAN  MEDOXOMIL) [Suspect]
     Indication: HYPERTENSION
     Dosage: 20/12.5 MG (QD), PER ORAL
     Route: 048
     Dates: start: 20070101
  2. LIPITOR [Suspect]
     Indication: DYSLIPIDAEMIA
     Dosage: 10 MG (10 MG, QD), PER ORAL
     Route: 048
     Dates: start: 20070101
  3. METOPROLOL SUCCINATE [Concomitant]
  4. NIFEDIPINE [Concomitant]

REACTIONS (1)
  - MALAISE [None]
